FAERS Safety Report 11495824 (Version 1)
Quarter: 2015Q3

REPORT INFORMATION
  Report Type: Spontaneous
  Country: US (occurrence: US)
  Receive Date: 20150911
  Receipt Date: 20150911
  Transmission Date: 20151125
  Serious: No
  Sender: FDA-Public Use
  Company Number: US-ROCHE-799084

PATIENT
  Sex: Female
  Weight: 67 kg

DRUGS (4)
  1. PROMACTA [Concomitant]
     Active Substance: ELTROMBOPAG OLAMINE
  2. ELTROMBOPAG [Concomitant]
     Active Substance: ELTROMBOPAG
     Indication: THROMBOCYTOPENIA
     Route: 048
     Dates: start: 20110526, end: 20111102
  3. PEGASYS [Suspect]
     Active Substance: PEGINTERFERON ALFA-2A
     Indication: HEPATITIS C
     Route: 058
     Dates: start: 20110514, end: 20111026
  4. RIBAVIRIN. [Suspect]
     Active Substance: RIBAVIRIN
     Indication: HEPATITIS C
     Route: 048

REACTIONS (6)
  - Asthenia [Unknown]
  - Platelet count decreased [Unknown]
  - Alopecia [Unknown]
  - Unevaluable event [Unknown]
  - Splenomegaly [Unknown]
  - Fatigue [Unknown]
